FAERS Safety Report 8475371-X (Version None)
Quarter: 2012Q2

REPORT INFORMATION
  Report Type: 
  Country: None (occurrence: None)
  Receive Date: 20120628
  Receipt Date: 20120614
  Transmission Date: 20120825
  Serious: Yes (Other)
  Sender: FDA-Public Use
  Company Number: GB-ELI_LILLY_AND_COMPANY-GB201206003523

PATIENT
  Age: 16 Year
  Sex: Male

DRUGS (3)
  1. ZYPREXA [Suspect]
     Route: 030
  2. ZYPREXA [Suspect]
     Indication: PSYCHOTIC DISORDER
     Dosage: 15 MG, UNK
     Route: 048
  3. ZUCLOPENTHIXOL [Concomitant]
     Indication: PSYCHOTIC DISORDER

REACTIONS (3)
  - MYOCARDITIS [None]
  - BLOOD THROMBIN INCREASED [None]
  - PERICARDITIS [None]
